FAERS Safety Report 19886039 (Version 1)
Quarter: 2021Q3

REPORT INFORMATION
  Report Type: Spontaneous
  Country: US (occurrence: US)
  Receive Date: 20210927
  Receipt Date: 20210927
  Transmission Date: 20211014
  Serious: Yes (Other)
  Sender: FDA-Public Use
  Company Number: US-EYEVANCE PHARMACEUTICALS-2021EYE00096

PATIENT
  Sex: Female

DRUGS (1)
  1. FRESHKOTE [Suspect]
     Active Substance: POLYVINYL ALCOHOL\POVIDONE
     Dosage: UNK, 3X/DAY IN EACH EYE
     Route: 047

REACTIONS (2)
  - Spinal operation [Not Recovered/Not Resolved]
  - Mobility decreased [Not Recovered/Not Resolved]

NARRATIVE: CASE EVENT DATE: 2021
